FAERS Safety Report 15168468 (Version 1)
Quarter: 2018Q3

REPORT INFORMATION
  Report Type: Report from Study
  Country: CA (occurrence: CA)
  Receive Date: 20180719
  Receipt Date: 20180719
  Transmission Date: 20181010
  Serious: Yes (Hospitalization)
  Sender: FDA-Public Use
  Company Number: CA-TAIHO ONCOLOGY  INC-US-2018-00112

PATIENT
  Age: 70 Year
  Sex: Male
  Weight: 90.4 kg

DRUGS (1)
  1. LONSURF [Suspect]
     Active Substance: TIPIRACIL HYDROCHLORIDE\TRIFLURIDINE
     Dosage: CYCLE 4 COMPLETED
     Route: 048
     Dates: start: 20180320, end: 20180628

REACTIONS (5)
  - Condition aggravated [None]
  - Escherichia infection [Unknown]
  - Lymphadenopathy [Unknown]
  - Urosepsis [Unknown]
  - Disease progression [Unknown]

NARRATIVE: CASE EVENT DATE: 2018
